FAERS Safety Report 14983576 (Version 1)
Quarter: 2018Q2

REPORT INFORMATION
  Report Type: Spontaneous
  Country: US (occurrence: US)
  Receive Date: 20180607
  Receipt Date: 20180607
  Transmission Date: 20180711
  Serious: Yes (Hospitalization, Other)
  Sender: FDA-Public Use
  Company Number: US-BIOGEN-2010BI021064

PATIENT
  Age: 59 Year
  Sex: Male
  Weight: 99.88 kg

DRUGS (5)
  1. AVONEX [Suspect]
     Active Substance: INTERFERON BETA-1A
     Route: 065
  2. AVONEX [Suspect]
     Active Substance: INTERFERON BETA-1A
     Indication: MULTIPLE SCLEROSIS
     Route: 030
     Dates: start: 19981001, end: 2003
  3. FLOMAX [Concomitant]
     Active Substance: TAMSULOSIN HYDROCHLORIDE
     Indication: BENIGN PROSTATIC HYPERPLASIA
     Route: 065
     Dates: start: 1995
  4. AVONEX [Suspect]
     Active Substance: INTERFERON BETA-1A
     Route: 030
     Dates: start: 2003
  5. AVONEX [Suspect]
     Active Substance: INTERFERON BETA-1A
     Route: 030

REACTIONS (13)
  - Renal cancer [Recovered/Resolved]
  - Hernia [Recovered/Resolved]
  - Postoperative ileus [Recovered/Resolved]
  - Bladder disorder [Not Recovered/Not Resolved]
  - Renal disorder [Unknown]
  - Clostridium difficile infection [Recovered/Resolved]
  - Prostate cancer [Not Recovered/Not Resolved]
  - Kidney fibrosis [Unknown]
  - Diarrhoea [Recovered/Resolved]
  - Post procedural haemorrhage [Recovered/Resolved]
  - Abdominal hernia [Recovered/Resolved]
  - Seasonal allergy [Recovered/Resolved]
  - Nausea [Recovered/Resolved]

NARRATIVE: CASE EVENT DATE: 2005
